FAERS Safety Report 22519815 (Version 1)
Quarter: 2023Q2

REPORT INFORMATION
  Report Type: Spontaneous
  Country: US (occurrence: None)
  Receive Date: 20230602
  Receipt Date: 20230602
  Transmission Date: 20230722
  Serious: No
  Sender: FDA-Public Use
  Company Number: None

PATIENT
  Sex: Male

DRUGS (14)
  1. ABIRATERONE ACETATE [Suspect]
     Active Substance: ABIRATERONE ACETATE
     Indication: Prostate cancer
     Dosage: OTHER QUANTITY : 4T;?FREQUENCY : DAILY;?
     Route: 048
     Dates: start: 20230405
  2. ZYTIGA [Concomitant]
     Active Substance: ABIRATERONE ACETATE
  3. ZOMETA [Concomitant]
     Active Substance: ZOLEDRONIC ACID
  4. PREDNISONE [Concomitant]
  5. LISINOPRIL [Concomitant]
  6. LOVASTATIN [Concomitant]
  7. MORPJOME SULFATE [Concomitant]
  8. OMEPRAZOLE [Concomitant]
  9. PEPCID [Concomitant]
  10. PROSCAR [Concomitant]
     Active Substance: FINASTERIDE
  11. VITAMIN B12 [Concomitant]
     Active Substance: CYANOCOBALAMIN
  12. PXMENS [Concomitant]
  13. ZPFRAN [Concomitant]
  14. TRELSTAR [Concomitant]
     Active Substance: TRIPTORELIN PAMOATE

REACTIONS (2)
  - Hospice care [None]
  - Therapy cessation [None]
